FAERS Safety Report 16427213 (Version 1)
Quarter: 2019Q3

REPORT INFORMATION
  Report Type: Spontaneous
  Country: US (occurrence: US)
  Receive Date: 20190612
  Receipt Date: 20190612
  Transmission Date: 20191004
  Serious: Yes (Hospitalization)
  Sender: FDA-Public Use
  Company Number: None

PATIENT
  Age: 68 Year
  Sex: Female

DRUGS (14)
  1. ARMODAFINIL. [Concomitant]
     Active Substance: ARMODAFINIL
     Dates: start: 20190612
  2. BUPROPION. [Concomitant]
     Active Substance: BUPROPION
     Dates: start: 20190502
  3. COQ10 [Concomitant]
     Active Substance: UBIDECARENONE
     Dates: start: 20190307
  4. PREDNISOLONE. [Concomitant]
     Active Substance: PREDNISOLONE
     Dates: start: 20190319
  5. REBIF [Suspect]
     Active Substance: INTERFERON BETA-1A
     Indication: MULTIPLE SCLEROSIS
     Dosage: ?          OTHER FREQUENCY:3 TIMES PER WEEK;?
     Route: 058
     Dates: start: 20180223
  6. AZATHIOPRINE. [Concomitant]
     Active Substance: AZATHIOPRINE
     Dates: start: 20190602
  7. VITAMIN K2 [Concomitant]
     Active Substance: MENAQUINONE 6
     Dates: start: 20190612
  8. CYTOMEL [Concomitant]
     Active Substance: LIOTHYRONINE SODIUM
     Dates: start: 20190113
  9. FOLIC ACID. [Concomitant]
     Active Substance: FOLIC ACID
     Dates: start: 20190219
  10. IMURAN [Concomitant]
     Active Substance: AZATHIOPRINE
     Dates: start: 20190307
  11. LIOTHYRONINE [Concomitant]
     Active Substance: LIOTHYRONINE
     Dates: start: 20190221
  12. TURMERIC [Concomitant]
     Active Substance: HERBALS\TURMERIC
     Dates: start: 20190612
  13. VITAMIN K [Concomitant]
     Active Substance: PHYTONADIONE
     Dates: start: 20190612
  14. VITAMIN D3 [Concomitant]
     Active Substance: CHOLECALCIFEROL
     Dates: start: 20190612

REACTIONS (7)
  - Cellulitis [None]
  - Injection site erythema [None]
  - Injection site reaction [None]
  - Anorectal operation [None]
  - Muscular weakness [None]
  - Colostomy [None]
  - Cholecystectomy [None]
